FAERS Safety Report 4303174-6 (Version None)
Quarter: 2004Q1

REPORT INFORMATION
  Report Type: 
  Country: None (occurrence: None)
  Receive Date: 20040126
  Receipt Date: 20030926
  Transmission Date: 20041129
  Serious: No
  Sender: FDA-Public Use
  Company Number: USA030948369

PATIENT
  Sex: Male

DRUGS (3)
  1. STRATTERA [Suspect]
  2. XANAX [Concomitant]
  3. METHADONE HCL [Concomitant]

REACTIONS (1)
  - DRUG SCREEN POSITIVE [None]
